FAERS Safety Report 14092593 (Version 2)
Quarter: 2018Q3

REPORT INFORMATION
  Report Type: Report from Study
  Country: None (occurrence: BR)
  Receive Date: 20171016
  Receipt Date: 20180715
  Transmission Date: 20181010
  Serious: Yes (Hospitalization, Other)
  Sender: FDA-Public Use
  Company Number: BR-ABBVIE-17K-020-2126758-00

PATIENT
  Age: 36 Year
  Sex: Male
  Weight: 75 kg

DRUGS (5)
  1. HUMIRA [Suspect]
     Active Substance: ADALIMUMAB
     Route: 058
  2. AMITRIPTYLINE [Concomitant]
     Active Substance: AMITRIPTYLINE
     Indication: STRESS
  3. HUMIRA [Suspect]
     Active Substance: ADALIMUMAB
     Indication: ANKYLOSING SPONDYLITIS
     Route: 058
     Dates: start: 20160114
  4. AMITRIPTYLINE [Concomitant]
     Active Substance: AMITRIPTYLINE
     Indication: NERVOUSNESS
  5. BROMAZEPAM [Concomitant]
     Active Substance: BROMAZEPAM
     Indication: SPONDYLITIS

REACTIONS (11)
  - Hypophagia [Unknown]
  - Tendonitis [Recovering/Resolving]
  - Muscular weakness [Recovering/Resolving]
  - Nausea [Unknown]
  - Neuropathy peripheral [Unknown]
  - Venom poisoning [Recovered/Resolved]
  - Snake bite [Recovered/Resolved]
  - Weight decreased [Recovered/Resolved]
  - Therapeutic response unexpected [Unknown]
  - Pre-existing condition improved [Unknown]
  - Nasopharyngitis [Recovered/Resolved]

NARRATIVE: CASE EVENT DATE: 2016
